FAERS Safety Report 17914584 (Version 2)
Quarter: 2024Q2

REPORT INFORMATION
  Report Type: Spontaneous
  Country: FR (occurrence: FR)
  Receive Date: 20200619
  Receipt Date: 20240422
  Transmission Date: 20240716
  Serious: Yes (Other)
  Sender: FDA-Public Use
  Company Number: FR-CELLTRION INC.-2020FR023352

PATIENT

DRUGS (2)
  1. RITUXIMAB [Suspect]
     Active Substance: RITUXIMAB
     Indication: Purpura
     Dosage: 660 MG (1 TOTAL)
     Route: 042
     Dates: start: 20200522
  2. OMNIPAQUE [Suspect]
     Active Substance: IOHEXOL
     Indication: Computerised tomogram head
     Dosage: 120 ML
     Route: 042
     Dates: start: 20200527

REACTIONS (4)
  - Odynophagia [Recovered/Resolved]
  - Rash [Recovered/Resolved]
  - Arthralgia [Recovered/Resolved]
  - Intentional product use issue [Unknown]

NARRATIVE: CASE EVENT DATE: 20200529
